FAERS Safety Report 7080878-6 (Version None)
Quarter: 2010Q4

REPORT INFORMATION
  Report Type: 
  Country: None (occurrence: None)
  Receive Date: 20101103
  Receipt Date: 20101026
  Transmission Date: 20110411
  Serious: Yes (Hospitalization)
  Sender: FDA-Public Use
  Company Number: FR-SANOFI-AVENTIS-200913373FR

PATIENT
  Age: 64 Year
  Sex: Female

DRUGS (7)
  1. FUROSEMIDE [Suspect]
     Dosage: DOSE UNIT: 40 MG
     Route: 048
     Dates: start: 20090101, end: 20090723
  2. ACETARSOL/NEOMYCIN/NYSTATIN/POLYMYXIN B SULFATE [Suspect]
     Dosage: DOSE UNIT: 170000 IU DOSE:1 UNIT(S)
     Route: 067
     Dates: start: 20090629, end: 20090714
  3. TENORDATE [Suspect]
     Dosage: DOSE UNIT: 70 MG
     Route: 048
     Dates: start: 20090101, end: 20090723
  4. INIPOMP [Concomitant]
  5. KETOPROFEN [Concomitant]
     Dosage: DOSE UNIT: 150 MG
     Route: 048
  6. EFFERALGAN [Concomitant]
  7. TRAMADOL HCL [Concomitant]
     Route: 048

REACTIONS (1)
  - DRUG RASH WITH EOSINOPHILIA AND SYSTEMIC SYMPTOMS [None]
